FAERS Safety Report 11649481 (Version 1)
Quarter: 2015Q4

REPORT INFORMATION
  Report Type: Spontaneous
  Country: US (occurrence: US)
  Receive Date: 20151021
  Receipt Date: 20151021
  Transmission Date: 20160304
  Serious: No
  Sender: FDA-Public Use
  Company Number: US-GLAXOSMITHKLINE-US2015147597

PATIENT
  Sex: Female
  Weight: 64 kg

DRUGS (1)
  1. EQUATE NICOTINE [Suspect]
     Active Substance: NICOTINE
     Indication: SMOKING CESSATION THERAPY
     Dosage: 14 MG, UNK
     Dates: start: 20151006, end: 20151014

REACTIONS (3)
  - Blister [Recovered/Resolved]
  - Rash [Recovered/Resolved]
  - Dysgeusia [Recovered/Resolved]
